FAERS Safety Report 24623445 (Version 1)
Quarter: 2024Q4

REPORT INFORMATION
  Report Type: Spontaneous
  Country: US (occurrence: US)
  Receive Date: 20241115
  Receipt Date: 20241115
  Transmission Date: 20250114
  Serious: No
  Sender: EMD SERONO INC
  Company Number: US-Merck Healthcare KGaA-2024059211

PATIENT
  Age: 65 Year
  Sex: Female

DRUGS (1)
  1. MAVENCLAD [Suspect]
     Active Substance: CLADRIBINE
     Indication: Multiple sclerosis
     Dosage: AT A PRESCRIBED DOSE OF TWO TABLETS ON DAYS ONE TO TWO AND ONE TABLET FROM DAYS THREE TO FIVE
     Dates: start: 20241105

REACTIONS (2)
  - Pain in extremity [Unknown]
  - Arthralgia [Unknown]
